FAERS Safety Report 16425442 (Version 4)
Quarter: 2021Q3

REPORT INFORMATION
  Report Type: Spontaneous
  Country: US (occurrence: US)
  Receive Date: 20190613
  Receipt Date: 20210727
  Transmission Date: 20211014
  Serious: Yes (Other)
  Sender: FDA-Public Use
  Company Number: US-GILEAD-2019-0413101

PATIENT
  Age: 52 Year
  Sex: Male
  Weight: 74.83 kg

DRUGS (9)
  1. REYATAZ [Concomitant]
     Active Substance: ATAZANAVIR SULFATE
  2. VANCOMYCIN [Concomitant]
     Active Substance: VANCOMYCIN
  3. TIVICAY [Concomitant]
     Active Substance: DOLUTEGRAVIR SODIUM
  4. NORVIR [Concomitant]
     Active Substance: RITONAVIR
  5. HEPARIN [Concomitant]
     Active Substance: HEPARIN SODIUM
  6. VIREAD [Suspect]
     Active Substance: TENOFOVIR DISOPROXIL FUMARATE
     Indication: HIV INFECTION
     Dosage: UNK
     Route: 048
     Dates: start: 200210, end: 201904
  7. SEVELAMER [Concomitant]
     Active Substance: SEVELAMER
  8. ACETAMINOPHEN. [Concomitant]
     Active Substance: ACETAMINOPHEN
  9. ASPIRIN (E.C.) [Concomitant]
     Active Substance: ASPIRIN

REACTIONS (16)
  - End stage renal disease [Not Recovered/Not Resolved]
  - Osteoporosis [Unknown]
  - Cervical vertebral fracture [Unknown]
  - Anxiety [Not Recovered/Not Resolved]
  - Chronic kidney disease [Not Recovered/Not Resolved]
  - Multiple fractures [Recovered/Resolved]
  - Renal failure [Unknown]
  - Depression [Not Recovered/Not Resolved]
  - Anaemia [Not Recovered/Not Resolved]
  - Economic problem [Unknown]
  - Bone density decreased [Not Recovered/Not Resolved]
  - Emotional distress [Not Recovered/Not Resolved]
  - Pain [Not Recovered/Not Resolved]
  - Anhedonia [Unknown]
  - Tooth loss [Recovered/Resolved]
  - Vitamin D deficiency [Unknown]

NARRATIVE: CASE EVENT DATE: 201201
